FAERS Safety Report 4710279-4 (Version None)
Quarter: 2005Q3

REPORT INFORMATION
  Report Type: 
  Country: None (occurrence: None)
  Receive Date: 20050711
  Receipt Date: 20050627
  Transmission Date: 20060218
  Serious: Yes (Death, Hospitalization)
  Sender: FDA-Public Use
  Company Number: US-JNJFOC-20050700707

PATIENT
  Sex: Female

DRUGS (9)
  1. REMICADE [Suspect]
     Route: 042
  2. REMICADE [Suspect]
     Indication: CROHN'S DISEASE
     Route: 042
  3. PREDNISONE TAB [Concomitant]
  4. XANAX [Concomitant]
  5. PROTONIX [Concomitant]
  6. METHADONE [Concomitant]
  7. LORTAB [Concomitant]
  8. LORTAB [Concomitant]
  9. RENAGEL [Concomitant]

REACTIONS (6)
  - CARDIO-RESPIRATORY ARREST [None]
  - HAEMOLYTIC URAEMIC SYNDROME [None]
  - HYPOGLYCAEMIA [None]
  - MULTI-ORGAN FAILURE [None]
  - PERICARDIAL EFFUSION [None]
  - SEPTIC SHOCK [None]
